FAERS Safety Report 8055841-9 (Version None)
Quarter: 2012Q1

REPORT INFORMATION
  Report Type: 
  Country: None (occurrence: None)
  Receive Date: 20120119
  Receipt Date: 20120119
  Transmission Date: 20120608
  Serious: Yes (Other)
  Sender: FDA-Public Use
  Company Number: None

PATIENT
  Sex: Female
  Weight: 172.81 kg

DRUGS (1)
  1. SEROQUEL [Suspect]
     Indication: ANXIETY
     Dosage: 100MG
     Route: 048
     Dates: start: 20110901, end: 20111015

REACTIONS (1)
  - SLEEP-RELATED EATING DISORDER [None]
